FAERS Safety Report 5097858-2 (Version None)
Quarter: 2006Q3

REPORT INFORMATION
  Report Type: 
  Country: None (occurrence: None)
  Receive Date: 20060905
  Receipt Date: 20060821
  Transmission Date: 20061208
  Serious: Yes (Hospitalization)
  Sender: FDA-Public Use
  Company Number: 6025148

PATIENT
  Age: 78 Year
  Sex: Male

DRUGS (5)
  1. BISOPROLOL FUMARATE [Suspect]
     Indication: DRUG USE FOR UNKNOWN INDICATION
     Dosage: ORAL
     Route: 048
  2. CORDARONE [Suspect]
     Indication: DRUG USE FOR UNKNOWN INDICATION
     Dosage: ORAL
     Route: 048
  3. PREVISCAN (FLUINDIONE) [Suspect]
     Indication: DRUG USE FOR UNKNOWN INDICATION
     Dosage: ORAL
     Route: 048
  4. AUGMENTIN '125' [Suspect]
     Indication: ABDOMINAL ABSCESS
     Dosage: INTRAVENOUS
     Route: 042
     Dates: start: 20060515, end: 20060601
  5. AERIUS (DESLORATADINE) [Suspect]
     Indication: DRUG USE FOR UNKNOWN INDICATION
     Dosage: ORAL
     Route: 048

REACTIONS (10)
  - CEREBROVASCULAR ACCIDENT [None]
  - CHOLESTASIS [None]
  - DRUG INEFFECTIVE [None]
  - HEPATIC STEATOSIS [None]
  - HEPATITIS [None]
  - HYPOALBUMINAEMIA [None]
  - LIGHT CHAIN ANALYSIS INCREASED [None]
  - NEPHROTIC SYNDROME [None]
  - PRURITUS GENERALISED [None]
  - RENAL FAILURE [None]
